FAERS Safety Report 7460244-1 (Version None)
Quarter: 2011Q2

REPORT INFORMATION
  Report Type: 
  Country: None (occurrence: None)
  Receive Date: 20110505
  Receipt Date: 20110427
  Transmission Date: 20111010
  Serious: Yes (Other)
  Sender: FDA-Public Use
  Company Number: US-ROCHE-774294

PATIENT
  Sex: Male

DRUGS (1)
  1. AVASTIN [Suspect]
     Dosage: SINCE 2 YEARS
     Route: 065

REACTIONS (2)
  - GLIOBLASTOMA MULTIFORME [None]
  - SERUM SICKNESS [None]
